FAERS Safety Report 18041567 (Version 2)
Quarter: 2020Q3

REPORT INFORMATION
  Report Type: Report from Study
  Country: None (occurrence: US)
  Receive Date: 20200720
  Receipt Date: 20200805
  Transmission Date: 20201103
  Serious: Yes (Other)
  Sender: FDA-Public Use
  Company Number: US-ABBVIE-19K-163-2994300-00

PATIENT
  Age: 57 Year
  Sex: Female

DRUGS (6)
  1. IBUPROFEN. [Concomitant]
     Active Substance: IBUPROFEN
     Indication: PRODUCT USED FOR UNKNOWN INDICATION
  2. PLAQUENIL [Concomitant]
     Active Substance: HYDROXYCHLOROQUINE SULFATE
     Indication: RHEUMATOID ARTHRITIS
  3. MELOXICAM. [Concomitant]
     Active Substance: MELOXICAM
     Indication: PRODUCT USED FOR UNKNOWN INDICATION
  4. GABAPENTIN. [Concomitant]
     Active Substance: GABAPENTIN
     Indication: RHEUMATOID ARTHRITIS
  5. HUMIRA [Suspect]
     Active Substance: ADALIMUMAB
     Indication: RHEUMATOID ARTHRITIS
     Dosage: CITRATE FREE
     Route: 058
     Dates: start: 20191018, end: 20200617
  6. MELOXICAM. [Concomitant]
     Active Substance: MELOXICAM
     Indication: RHEUMATOID ARTHRITIS

REACTIONS (33)
  - Synovial cyst [Unknown]
  - Injection site erythema [Recovered/Resolved]
  - Pain in extremity [Recovering/Resolving]
  - Injection site pain [Recovered/Resolved]
  - Therapeutic product effect incomplete [Unknown]
  - Bursitis [Not Recovered/Not Resolved]
  - Joint noise [Unknown]
  - Fatigue [Recovering/Resolving]
  - Nerve injury [Unknown]
  - Mobility decreased [Unknown]
  - Neck pain [Recovering/Resolving]
  - Headache [Recovered/Resolved]
  - Injection site urticaria [Recovering/Resolving]
  - Joint swelling [Recovered/Resolved]
  - Arthralgia [Recovering/Resolving]
  - Pain in extremity [Unknown]
  - Injection site urticaria [Recovered/Resolved]
  - Arthralgia [Recovered/Resolved]
  - Pain [Unknown]
  - Haemarthrosis [Unknown]
  - Glycosylated haemoglobin decreased [Unknown]
  - Joint stiffness [Recovered/Resolved]
  - Swelling [Recovered/Resolved]
  - Joint stiffness [Recovering/Resolving]
  - Arthralgia [Recovering/Resolving]
  - Discomfort [Recovered/Resolved]
  - Injection site pruritus [Recovering/Resolving]
  - Chills [Recovering/Resolving]
  - Gait disturbance [Recovered/Resolved]
  - Blood cholesterol decreased [Unknown]
  - Joint swelling [Recovering/Resolving]
  - Pain [Recovered/Resolved]
  - Arthralgia [Not Recovered/Not Resolved]

NARRATIVE: CASE EVENT DATE: 2019
